FAERS Safety Report 16816026 (Version 3)
Quarter: 2019Q4

REPORT INFORMATION
  Report Type: Spontaneous
  Country: BR (occurrence: BR)
  Receive Date: 20190917
  Receipt Date: 20191031
  Transmission Date: 20200122
  Serious: Yes (Death, Other)
  Sender: FDA-Public Use
  Company Number: BR-AMGEN-BRASP2016132950

PATIENT
  Age: 79 Year
  Sex: Female

DRUGS (1)
  1. ENBREL [Suspect]
     Active Substance: ETANERCEPT
     Indication: PRODUCT USED FOR UNKNOWN INDICATION
     Dosage: UNK
     Route: 065
     Dates: start: 201608

REACTIONS (7)
  - Pneumonia [Fatal]
  - Fibrosis [Unknown]
  - Spinal disorder [Unknown]
  - Pain [Unknown]
  - Arthropathy [Unknown]
  - Respiratory failure [Fatal]
  - Rheumatic disorder [Unknown]

NARRATIVE: CASE EVENT DATE: 2016
